FAERS Safety Report 12585839 (Version 2)
Quarter: 2016Q3

REPORT INFORMATION
  Report Type: Report from Study
  Country: US (occurrence: US)
  Receive Date: 20160725
  Receipt Date: 20160802
  Transmission Date: 20161109
  Serious: Yes (Hospitalization, Other)
  Sender: FDA-Public Use
  Company Number: US-GILEAD-2016-0216742

PATIENT
  Age: 46 Year
  Sex: Female
  Weight: 57.14 kg

DRUGS (11)
  1. AMBRISENTAN [Suspect]
     Active Substance: AMBRISENTAN
     Indication: PULMONARY ARTERIAL HYPERTENSION
     Dosage: 5 MG, QD
     Dates: start: 20160420, end: 20160519
  2. HUMALOG [Concomitant]
     Active Substance: INSULIN LISPRO
  3. HYDRALAZINE [Concomitant]
     Active Substance: HYDRALAZINE HYDROCHLORIDE
  4. UPTRAVI [Concomitant]
     Active Substance: SELEXIPAG
  5. VENTOLIN [Concomitant]
     Active Substance: ALBUTEROL SULFATE
  6. SIMVASTATIN. [Concomitant]
     Active Substance: SIMVASTATIN
  7. SILDENAFIL. [Concomitant]
     Active Substance: SILDENAFIL
  8. METFORMIN [Concomitant]
     Active Substance: METFORMIN HYDROCHLORIDE
  9. LOSARTAN. [Concomitant]
     Active Substance: LOSARTAN
  10. METOPROLOL. [Concomitant]
     Active Substance: METOPROLOL
  11. TORSEMIDE. [Concomitant]
     Active Substance: TORSEMIDE

REACTIONS (2)
  - Cardiac failure [Recovered/Resolved]
  - Oedema peripheral [Recovered/Resolved]
